FAERS Safety Report 12788586 (Version 2)
Quarter: 2018Q2

REPORT INFORMATION
  Report Type: Spontaneous
  Country: PL (occurrence: PL)
  Receive Date: 20160928
  Receipt Date: 20180515
  Transmission Date: 20180711
  Serious: Yes (Other)
  Sender: FDA-Public Use
  Company Number: PL-TEVA-694779ACC

PATIENT
  Age: 74 Year
  Sex: Female
  Weight: 63 kg

DRUGS (3)
  1. LEUCOVORIN (CALCIUM FOLINATE) [Suspect]
     Active Substance: LEUCOVORIN
     Indication: COLON CANCER
     Dosage: DOSE: 335; DOSE UNIT: NOT SPECIFIED
     Route: 042
     Dates: start: 20160112, end: 20160330
  2. OXALIPLATIN. [Suspect]
     Active Substance: OXALIPLATIN
     Indication: COLON CANCER
     Dosage: DOSE: 142; DOSE UNIT: NOT SPECIFIED
     Route: 042
     Dates: start: 20160112, end: 20160329
  3. 5-FLUOROURACIL [Suspect]
     Active Substance: FLUOROURACIL
     Indication: COLON CANCER
     Dosage: DOSE: 670; DOSE UNIT: NOT SPECIFIED
     Route: 042
     Dates: start: 20160112, end: 20160331

REACTIONS (1)
  - Neutropenia [Unknown]

NARRATIVE: CASE EVENT DATE: 20160419
